FAERS Safety Report 5449688-7 (Version None)
Quarter: 2007Q3

REPORT INFORMATION
  Report Type: 
  Country: None (occurrence: None)
  Receive Date: 20070910
  Receipt Date: 20070910
  Transmission Date: 20080115
  Serious: Yes (Other)
  Sender: FDA-Public Use
  Company Number: None

PATIENT
  Sex: Female
  Weight: 113.8529 kg

DRUGS (1)
  1. GLYBURIDE AND METFORMIN HCL [Suspect]
     Indication: TYPE 2 DIABETES MELLITUS
     Dosage: TWO BID BID PO
     Route: 048
     Dates: start: 20070628, end: 20070828

REACTIONS (1)
  - NAUSEA [None]
